FAERS Safety Report 22735852 (Version 2)
Quarter: 2024Q2

REPORT INFORMATION
  Report Type: Spontaneous
  Country: US (occurrence: US)
  Receive Date: 20230721
  Receipt Date: 20240405
  Transmission Date: 20240715
  Serious: Yes (Hospitalization, Other)
  Sender: FDA-Public Use
  Company Number: US-MLMSERVICE-20230703-4385882-1

PATIENT
  Age: 53 Year
  Sex: Male

DRUGS (3)
  1. AZITHROMYCIN [Suspect]
     Active Substance: AZITHROMYCIN
     Indication: COVID-19
     Dosage: UNK
     Route: 065
  2. PREDNISONE [Suspect]
     Active Substance: PREDNISONE
     Indication: COVID-19
     Dosage: TAPER
     Route: 065
  3. PREDNISONE [Suspect]
     Active Substance: PREDNISONE
     Dosage: FOR BACTERIAL SINUSITIS
     Route: 065

REACTIONS (5)
  - Klebsiella infection [Unknown]
  - Bacterial infection [Unknown]
  - Sinusitis fungal [Unknown]
  - Rhinocerebral mucormycosis [Unknown]
  - Off label use [Unknown]
